FAERS Safety Report 20123338 (Version 1)
Quarter: 2021Q4

REPORT INFORMATION
  Report Type: Spontaneous
  Country: CA (occurrence: CA)
  Receive Date: 20211129
  Receipt Date: 20211129
  Transmission Date: 20220303
  Serious: Yes (Other)
  Sender: FDA-Public Use
  Company Number: CA-SA-SAC20211124001403

PATIENT
  Age: 51 Year
  Sex: Female

DRUGS (4)
  1. LEFLUNOMIDE [Suspect]
     Active Substance: LEFLUNOMIDE
     Indication: Product used for unknown indication
     Dosage: UNK
  2. FOLIC ACID [Suspect]
     Active Substance: FOLIC ACID
     Indication: Product used for unknown indication
     Dosage: UNK
  3. METHOTREXATE [Suspect]
     Active Substance: METHOTREXATE
     Indication: Product used for unknown indication
     Dosage: 25 MG
     Route: 065
  4. KETOPROFEN [Concomitant]
     Active Substance: KETOPROFEN
     Indication: Product used for unknown indication
     Dosage: UNK

REACTIONS (12)
  - Synovitis [Unknown]
  - Enthesopathy [Unknown]
  - Inflammation [Unknown]
  - Joint swelling [Unknown]
  - Pain [Unknown]
  - Photosensitivity reaction [Unknown]
  - Plantar fasciitis [Unknown]
  - Psoriasis [Unknown]
  - Spinal osteoarthritis [Unknown]
  - Nausea [Unknown]
  - Rash [Unknown]
  - Headache [Unknown]
